FAERS Safety Report 8375286-1 (Version None)
Quarter: 2012Q2

REPORT INFORMATION
  Report Type: 
  Country: None (occurrence: None)
  Receive Date: 20120522
  Receipt Date: 20120511
  Transmission Date: 20120825
  Serious: Yes (Hospitalization)
  Sender: FDA-Public Use
  Company Number: US-BIOGENIDEC-2011BI004623

PATIENT
  Age: 50 Year
  Sex: Male

DRUGS (1)
  1. TYSABRI [Suspect]
     Indication: MULTIPLE SCLEROSIS
     Route: 042
     Dates: start: 20101109, end: 20110201

REACTIONS (3)
  - HYPERSENSITIVITY [None]
  - CENTRAL NERVOUS SYSTEM LESION [None]
  - DRUG SPECIFIC ANTIBODY PRESENT [None]
